FAERS Safety Report 18279145 (Version 1)
Quarter: 2020Q3

REPORT INFORMATION
  Report Type: Report from Study
  Country: TW (occurrence: TW)
  Receive Date: 20200917
  Receipt Date: 20200917
  Transmission Date: 20201103
  Serious: No
  Sender: FDA-Public Use
  Company Number: TW-JNJFOC-A-CH2018-168760

PATIENT
  Age: 71 Year
  Sex: Female

DRUGS (2)
  1. OPSUMIT [Suspect]
     Active Substance: MACITENTAN
     Indication: PULMONARY ARTERIAL HYPERTENSION
     Dosage: 10 MG, QD
     Route: 048
     Dates: start: 20150702
  2. OPSUMIT [Suspect]
     Active Substance: MACITENTAN
     Dosage: 10 MG, QD
     Route: 048
     Dates: start: 20140912

REACTIONS (7)
  - Polyuria [Unknown]
  - Dyspnoea [Unknown]
  - Chest pain [Recovered/Resolved]
  - Abdominal pain [Recovering/Resolving]
  - Gastritis [Recovering/Resolving]
  - Diarrhoea [Unknown]
  - Oedema peripheral [Unknown]

NARRATIVE: CASE EVENT DATE: 20180218
